FAERS Safety Report 19458938 (Version 1)
Quarter: 2021Q2

REPORT INFORMATION
  Report Type: Spontaneous
  Country: US (occurrence: US)
  Receive Date: 20210624
  Receipt Date: 20210624
  Transmission Date: 20210717
  Serious: No
  Sender: FDA-Public Use
  Company Number: US-MYLANLABS-2021M1036304

PATIENT
  Sex: Female
  Weight: 70 kg

DRUGS (1)
  1. MIRTAZAPINE TABLETS, USP [Suspect]
     Active Substance: MIRTAZAPINE
     Indication: DEPRESSION
     Dosage: ONCE
     Route: 048
     Dates: start: 20210616

REACTIONS (2)
  - Dysuria [Not Recovered/Not Resolved]
  - Poor quality sleep [Not Recovered/Not Resolved]
